FAERS Safety Report 4674102-9 (Version None)
Quarter: 2005Q2

REPORT INFORMATION
  Report Type: 
  Country: None (occurrence: None)
  Receive Date: 20050524
  Receipt Date: 20050524
  Transmission Date: 20051028
  Serious: Yes (Hospitalization)
  Sender: FDA-Public Use
  Company Number: None

PATIENT
  Age: 60 Year
  Sex: Male
  Weight: 115.6672 kg

DRUGS (2)
  1. DOCETAXEL [Suspect]
     Indication: SQUAMOUS CELL CARCINOMA
     Dosage: 92 MG   X 1 DOSE   INTRAVENOUS
     Route: 042
     Dates: start: 20050427, end: 20050427
  2. GEMCITABINE [Suspect]
     Indication: SQUAMOUS CELL CARCINOMA
     Dosage: 1380 MG   X 1 DOSE   INTRAVENOUS
     Route: 042
     Dates: start: 20050427, end: 20050427

REACTIONS (3)
  - DYSPNOEA [None]
  - LIVER FUNCTION TEST ABNORMAL [None]
  - TRACHEOBRONCHITIS [None]
